FAERS Safety Report 23920672 (Version 1)
Quarter: 2024Q2

REPORT INFORMATION
  Report Type: Spontaneous
  Country: US (occurrence: None)
  Receive Date: 20240528
  Receipt Date: 20240528
  Transmission Date: 20240715
  Serious: Yes (Life-Threatening, Hospitalization)
  Sender: FDA-Public Use
  Company Number: None

PATIENT
  Age: 44 Year
  Sex: Male

DRUGS (2)
  1. HERBALS\MUSHROOMS UNSPECIFIED [Suspect]
     Active Substance: HERBALS\MUSHROOMS UNSPECIFIED
     Route: 048
  2. HERBALS\TETRAHYDROCANNABINOL UNSPECIFIED [Concomitant]
     Active Substance: HERBALS\TETRAHYDROCANNABINOL UNSPECIFIED

REACTIONS (8)
  - Nausea [None]
  - Dizziness [None]
  - Somnolence [None]
  - Unresponsive to stimuli [None]
  - Vomiting [None]
  - Aspiration [None]
  - Seizure [None]
  - Encephalopathy [None]

NARRATIVE: CASE EVENT DATE: 20240525
